FAERS Safety Report 8200728-1 (Version None)
Quarter: 2012Q1

REPORT INFORMATION
  Report Type: 
  Country: None (occurrence: None)
  Receive Date: 20120308
  Receipt Date: 20120301
  Transmission Date: 20120608
  Serious: Yes (Life-Threatening, Other)
  Sender: FDA-Public Use
  Company Number: GER/UKI/12/0023248

PATIENT
  Age: 85 Year
  Sex: Female

DRUGS (4)
  1. PERINDOPRIL ERBUMINE [Concomitant]
  2. ATORVASTATIN [Concomitant]
  3. ASPIRIN [Concomitant]
  4. DONEPEZIL HCL [Suspect]
     Indication: DEMENTIA ALZHEIMER'S TYPE
     Dosage: 5 MG, 1 IN 1 D, ORAL
     Route: 048
     Dates: start: 20111107

REACTIONS (1)
  - HAEMATURIA [None]
